FAERS Safety Report 8010466-6 (Version None)
Quarter: 2011Q4

REPORT INFORMATION
  Report Type: 
  Country: None (occurrence: None)
  Receive Date: 20111223
  Receipt Date: 20111223
  Transmission Date: 20120403
  Serious: Yes (Life-Threatening, Hospitalization, Disabling, Other)
  Sender: FDA-Public Use
  Company Number: None

PATIENT
  Age: 38 Year
  Sex: Male
  Weight: 122.4712 kg

DRUGS (3)
  1. PAXIL [Suspect]
     Indication: DEPRESSION
     Dosage: 40 MG A DAY 047
     Route: 048
     Dates: start: 19950515, end: 20040126
  2. PAXIL [Suspect]
     Indication: POST-TRAUMATIC STRESS DISORDER
     Dosage: 40 MG A DAY 047
     Route: 048
     Dates: start: 19950515, end: 20040126
  3. PAXIL [Suspect]

REACTIONS (15)
  - PAIN [None]
  - DEPRESSED LEVEL OF CONSCIOUSNESS [None]
  - FEELING ABNORMAL [None]
  - HEADACHE [None]
  - VISUAL ACUITY REDUCED [None]
  - APHASIA [None]
  - PERSONALITY CHANGE [None]
  - DYSGRAPHIA [None]
  - WEIGHT INCREASED [None]
  - HYPERHIDROSIS [None]
  - SUICIDE ATTEMPT [None]
  - WITHDRAWAL SYNDROME [None]
  - HAEMORRHAGE [None]
  - URINARY INCONTINENCE [None]
  - FAECAL INCONTINENCE [None]
